FAERS Safety Report 6721778-8 (Version None)
Quarter: 2010Q2

REPORT INFORMATION
  Report Type: 
  Country: None (occurrence: None)
  Receive Date: 20100512
  Receipt Date: 20100428
  Transmission Date: 20101027
  Serious: Yes (Hospitalization, Other)
  Sender: FDA-Public Use
  Company Number: US-ROCHE-642387

PATIENT
  Sex: Female

DRUGS (3)
  1. PEGASYS [Suspect]
     Indication: HEPATITIS C
     Dosage: FORM: PRE-FILLED SYRINGE
     Route: 058
     Dates: start: 20090626, end: 20091001
  2. RIBAVIRIN [Suspect]
     Indication: HEPATITIS C
     Dosage: DIVIDED DOSES
     Route: 048
     Dates: start: 20090626, end: 20091001
  3. ADDERALL 30 [Concomitant]

REACTIONS (16)
  - ANXIETY [None]
  - ARTHRALGIA [None]
  - ARTHRITIS [None]
  - BLISTER [None]
  - ERYTHEMA [None]
  - LARYNGEAL MASS [None]
  - LIP BLISTER [None]
  - MYALGIA [None]
  - OROPHARYNGEAL PAIN [None]
  - PAIN OF SKIN [None]
  - PNEUMONIA ASPIRATION [None]
  - PYREXIA [None]
  - SCRATCH [None]
  - SKIN SWELLING [None]
  - VOMITING [None]
  - WEIGHT DECREASED [None]
